FAERS Safety Report 14336160 (Version 1)
Quarter: 2017Q4

REPORT INFORMATION
  Report Type: Spontaneous
  Country: US (occurrence: US)
  Receive Date: 20171229
  Receipt Date: 20171229
  Transmission Date: 20180321
  Serious: No
  Sender: FDA-Public Use
  Company Number: US-JNJFOC-20171200253

PATIENT
  Age: 45 Year
  Sex: Female

DRUGS (2)
  1. GENVOYA [Suspect]
     Active Substance: COBICISTAT\ELVITEGRAVIR\EMTRICITABINE\TENOFOVIR ALAFENAMIDE FUMARATE
     Indication: HIV INFECTION
     Route: 065
     Dates: start: 20170821, end: 201709
  2. PREZISTA [Suspect]
     Active Substance: DARUNAVIR ETHANOLATE
     Indication: HIV INFECTION
     Dosage: DRUG ADMINISTRATION STOPPED IN SEP-2017
     Route: 048
     Dates: start: 20170821, end: 201709

REACTIONS (2)
  - Urticaria [Unknown]
  - Throat irritation [Unknown]

NARRATIVE: CASE EVENT DATE: 20171129
